FAERS Safety Report 5808733-7 (Version None)
Quarter: 2008Q3

REPORT INFORMATION
  Report Type: 
  Country: None (occurrence: None)
  Receive Date: 20080710
  Receipt Date: 20080710
  Transmission Date: 20090109
  Serious: Yes (Other)
  Sender: FDA-Public Use
  Company Number: None

PATIENT

DRUGS (1)
  1. ZICAM [Suspect]
     Dosage: 12-13 TABLETS
     Dates: start: 20080620, end: 20080620

REACTIONS (2)
  - AGEUSIA [None]
  - DYSGEUSIA [None]
